FAERS Safety Report 8750216 (Version 2)
Quarter: 2012Q4

REPORT INFORMATION
  Report Type: Spontaneous
  Country: JP (occurrence: None)
  Receive Date: 20120809
  Receipt Date: 20120907
  Transmission Date: 20130627
  Serious: Yes (Hospitalization)
  Sender: FDA-Public Use
  Company Number: JP-2012-15940

PATIENT
  Age: 80 Year
  Sex: Female
  Weight: 58 kg

DRUGS (16)
  1. SAMSCA [Suspect]
     Indication: FLUID RETENTION
     Dosage: QAM
     Route: 048
     Dates: start: 20120513, end: 20120513
  2. DOXAZOSIN MESYLATE [Concomitant]
  3. PROCYLIN (BERAPROST SODIUM) [Concomitant]
  4. LAC-B (BIFLDOBACTERIUM LACTIS) [Concomitant]
  5. URSO 250 [Concomitant]
  6. LASIX [Concomitant]
  7. FEBURIC (FEBUXISTAT) [Concomitant]
  8. ALDACTONE [Concomitant]
  9. LANSOPRAZOLE [Concomitant]
  10. ASPIRIN [Concomitant]
  11. CRESTOR [Concomitant]
  12. INFEDIPINE CR (NIFEDIPINE) [Concomitant]
  13. ARGAMATE (CALCIUM POLYSTRYRENE SULFONATE) [Concomitant]
  14. LASIX (FUROSEMIDE) [Concomitant]
  15. HANP (CARPERITIDE) [Concomitant]
  16. VASOLATOR (GLYCERYL TRINITRATE) [Concomitant]

REACTIONS (4)
  - Renal impairment [None]
  - Drug effect decreased [None]
  - Dialysis [None]
  - Circulatory collapse [None]
